FAERS Safety Report 7283113-9 (Version None)
Quarter: 2011Q1

REPORT INFORMATION
  Report Type: 
  Country: None (occurrence: None)
  Receive Date: 20110209
  Receipt Date: 20100707
  Transmission Date: 20110831
  Serious: No
  Sender: FDA-Public Use
  Company Number: A0868947A

PATIENT
  Sex: Male

DRUGS (2)
  1. PAXIL [Suspect]
     Indication: DEPRESSION
     Dosage: 50MG PER DAY
     Route: 048
     Dates: start: 20020701
  2. KLONOPIN [Concomitant]

REACTIONS (3)
  - NERVOUSNESS [None]
  - ANXIETY [None]
  - THERAPEUTIC RESPONSE DECREASED [None]
